FAERS Safety Report 5132282-5 (Version None)
Quarter: 2006Q4

REPORT INFORMATION
  Report Type: 
  Country: None (occurrence: None)
  Receive Date: 20061011
  Receipt Date: 20061011
  Transmission Date: 20070319
  Serious: Yes (Hospitalization)
  Sender: FDA-Public Use
  Company Number: None

PATIENT
  Age: 45 Year
  Sex: Female
  Weight: 47.6277 kg

DRUGS (54)
  1. ABRAXANE [Suspect]
     Indication: NEOPLASM RECURRENCE
     Dosage: 145.0MG/M2  D1,D8,D15  042   OVER 30 MINS
     Dates: start: 20060330
  2. ABRAXANE [Suspect]
     Indication: OVARIAN CANCER
     Dosage: 145.0MG/M2  D1,D8,D15  042   OVER 30 MINS
     Dates: start: 20060330
  3. CARBOPLATIN [Suspect]
     Indication: NEOPLASM RECURRENCE
     Dosage: 465MG/M2   Q 28 DAYS  042   OVER 1 HOUR
     Dates: start: 20060315
  4. CARBOPLATIN [Suspect]
     Indication: OVARIAN CANCER
     Dosage: 465MG/M2   Q 28 DAYS  042   OVER 1 HOUR
     Dates: start: 20060315
  5. DOXIL [Suspect]
     Indication: NEOPLASM RECURRENCE
     Dosage: 58.0 MG/M2   EVERY 28DAYS  042   OVER 2 HOURS
     Dates: start: 20060525
  6. DOXIL [Suspect]
     Indication: OVARIAN CANCER
     Dosage: 58.0 MG/M2   EVERY 28DAYS  042   OVER 2 HOURS
     Dates: start: 20060525
  7. FENTANYL TRANSDERMAL SYSTEM [Concomitant]
  8. AMITRIPTYLINE (ELAVIL) [Concomitant]
  9. ESTRADIOL (VIVELLE) [Concomitant]
  10. D5/045NS-KCL20MEQ [Concomitant]
  11. LEVAQUIN [Concomitant]
  12. PIPERACILLIN TAZ [Concomitant]
  13. VANCOMYCIN [Concomitant]
  14. ZOSYN [Concomitant]
  15. GEMTAMICIN [Concomitant]
  16. DAPTOMYCIN [Concomitant]
  17. ATIVAN [Concomitant]
  18. ZOLPIDEM (ATIVAN) [Concomitant]
  19. ACETAMINOPHEN TABLET (TYLENOL) [Concomitant]
  20. NALOXONE (NARCAN) [Concomitant]
  21. ZOFRAN [Concomitant]
  22. DIPHENHYDRAMINE (BENADRYL) [Concomitant]
  23. HYDROMORPHONE HCL [Concomitant]
  24. OXCODONE (ROXICET) [Concomitant]
  25. PROMETHAZINE (PHENERGAN) [Concomitant]
  26. BLD GLUCOSE [Concomitant]
  27. FAT EMULSION [Concomitant]
  28. HYPERAL AD CENTR [Concomitant]
  29. SOD CL 0.9% [Concomitant]
  30. PREMED WITH BENADRYL [Concomitant]
  31. MAALOX FAST BLOCKER [Concomitant]
  32. DEXTROSE [Concomitant]
  33. PROTONIX [Concomitant]
  34. TROUGH [Concomitant]
  35. AMPICILLIN SODIUM [Concomitant]
  36. OXYCODONE (PERCOET) [Concomitant]
  37. REGLAN [Concomitant]
  38. ZOLPIDEM (AMBEIN) [Concomitant]
  39. OXYCODONE-ACET [Concomitant]
  40. D5/0.45NACL [Concomitant]
  41. AMITRIPTYLINE (ELVAIL) [Concomitant]
  42. PANTOPRAZOLE SODIUM [Concomitant]
  43. FAT EMULSION 20% [Concomitant]
  44. HEPANIE FLUSH [Concomitant]
  45. ESTRADEM PATCH [Concomitant]
  46. DECADRON [Concomitant]
  47. TAGAMET [Concomitant]
  48. NEXIUM [Concomitant]
  49. EMMEND [Concomitant]
  50. NEUPOGEN [Concomitant]
  51. ARANESP [Concomitant]
  52. ABRAXANE [Concomitant]
  53. CARBOPLATIN [Concomitant]
  54. DOXIL [Concomitant]

REACTIONS (4)
  - NAUSEA [None]
  - PYREXIA [None]
  - STOMACH DISCOMFORT [None]
  - VOMITING [None]
